FAERS Safety Report 8220956-9 (Version None)
Quarter: 2012Q1

REPORT INFORMATION
  Report Type: 
  Country: None (occurrence: None)
  Receive Date: 20120320
  Receipt Date: 20120307
  Transmission Date: 20120608
  Serious: Yes (Hospitalization, Other)
  Sender: FDA-Public Use
  Company Number: JP-SANOFI-AVENTIS-2012SA015694

PATIENT
  Age: 76 Year
  Sex: Female
  Weight: 66 kg

DRUGS (15)
  1. OLMESARTAN MEDOXOMIL [Suspect]
     Route: 065
     Dates: start: 20090101
  2. ALFACALCIDOL [Suspect]
     Route: 048
     Dates: start: 20060101
  3. ALFACALCIDOL [Suspect]
     Route: 048
  4. ALFACALCIDOL [Suspect]
     Route: 048
     Dates: end: 20060101
  5. ALFACALCIDOL [Suspect]
     Route: 048
     Dates: start: 20060101
  6. SPIRONOLACTONE [Suspect]
     Indication: DIURETIC THERAPY
     Route: 065
     Dates: start: 20090101
  7. ALFACALCIDOL [Suspect]
     Indication: HYPOPARATHYROIDISM
     Route: 048
     Dates: start: 20010101, end: 20020101
  8. CALCIUM CARBONATE [Suspect]
     Route: 065
     Dates: end: 20060101
  9. FUROSEMIDE [Suspect]
     Route: 065
     Dates: start: 20090101
  10. ALFACALCIDOL [Suspect]
     Route: 048
     Dates: start: 20060101, end: 20091110
  11. ALFACALCIDOL [Suspect]
     Route: 048
     Dates: start: 20100101, end: 20100101
  12. ALFACALCIDOL [Suspect]
     Route: 048
     Dates: start: 20060101
  13. FUROSEMIDE [Suspect]
     Indication: DIURETIC THERAPY
     Dosage: DOSE REDUCED
     Route: 065
  14. ALFACALCIDOL [Suspect]
     Route: 048
     Dates: start: 20100101, end: 20100101
  15. CALCIUM CARBONATE [Suspect]
     Indication: HYPOPARATHYROIDISM
     Route: 065
     Dates: start: 20010101, end: 20020101

REACTIONS (14)
  - AZOTAEMIA [None]
  - BLOOD UREA INCREASED [None]
  - DEPRESSED LEVEL OF CONSCIOUSNESS [None]
  - HYPERKALAEMIA [None]
  - GLOMERULAR FILTRATION RATE DECREASED [None]
  - PYURIA [None]
  - HYPERPHOSPHATAEMIA [None]
  - RENAL FAILURE ACUTE [None]
  - HYPERCALCAEMIA [None]
  - PYREXIA [None]
  - RENAL FAILURE CHRONIC [None]
  - BLOOD CREATININE INCREASED [None]
  - URINARY TRACT INFECTION [None]
  - DEHYDRATION [None]
